FAERS Safety Report 8078938-6 (Version None)
Quarter: 2012Q1

REPORT INFORMATION
  Report Type: 
  Country: None (occurrence: None)
  Receive Date: 20120128
  Receipt Date: 20110425
  Transmission Date: 20120608
  Serious: No
  Sender: FDA-Public Use
  Company Number: US-ABBOTT-11P-163-0721653-00

PATIENT
  Age: 72 Year
  Sex: Male

DRUGS (2)
  1. ADVAIR DISKUS 100/50 [Concomitant]
     Indication: ASTHMA
  2. HUMIRA [Suspect]
     Indication: RHEUMATOID ARTHRITIS
     Dates: start: 20110101

REACTIONS (9)
  - MYALGIA [None]
  - JOINT SWELLING [None]
  - DRUG INEFFECTIVE [None]
  - BACK PAIN [None]
  - PAIN IN EXTREMITY [None]
  - WOUND SECRETION [None]
  - PRURITUS [None]
  - RHEUMATOID ARTHRITIS [None]
  - SCAB [None]
